FAERS Safety Report 10119219 (Version 2)
Quarter: 2014Q4

REPORT INFORMATION
  Report Type: Other
  Country: None (occurrence: US)
  Receive Date: 20140425
  Receipt Date: 20141215
  Transmission Date: 20150528
  Serious: Yes (Hospitalization, Other)
  Sender: FDA-Public Use
  Company Number: US-GSKPPD-2014GSK010530

PATIENT
  Age: 49 Year
  Sex: Male

DRUGS (7)
  1. AVANDIA [Suspect]
     Active Substance: ROSIGLITAZONE MALEATE
     Indication: DIABETES MELLITUS
     Route: 048
  2. NITROGLYCERIN. [Concomitant]
     Active Substance: NITROGLYCERIN
     Route: 060
  3. ALTACE [Concomitant]
     Active Substance: RAMIPRIL
  4. METOPROLOL [Concomitant]
     Active Substance: METOPROLOL
     Dosage: (UNITS NOT SPECIFIED)
  5. ZOCOR [Concomitant]
     Active Substance: SIMVASTATIN
     Dosage: (UNITS NOT SPECIFIED)
  6. ECOTRIN [Concomitant]
     Active Substance: ASPIRIN
     Dosage: (UNITS NOT SPECIFIED)
  7. PLAVIX [Concomitant]
     Active Substance: CLOPIDOGREL BISULFATE
     Dosage: (UNITS NOT SPECIFIED)

REACTIONS (1)
  - Myocardial infarction [Recovered/Resolved]

NARRATIVE: CASE EVENT DATE: 200603
